FAERS Safety Report 5378789-7 (Version None)
Quarter: 2007Q3

REPORT INFORMATION
  Report Type: 
  Country: None (occurrence: None)
  Receive Date: 20070705
  Receipt Date: 20070625
  Transmission Date: 20080115
  Serious: Yes (Other)
  Sender: FDA-Public Use
  Company Number: DE-ELI_LILLY_AND_COMPANY-DE200707000123

PATIENT
  Age: 61 Year
  Sex: Female

DRUGS (12)
  1. FORTEO [Suspect]
     Indication: OSTEOPOROSIS
     Dosage: 20 UG, UNK
     Route: 058
     Dates: start: 20070525, end: 20070623
  2. CARBAMAZEPINE [Concomitant]
     Dosage: 1600 UNK, DAILY (1/D)
  3. LEVOMEPROMAZINE [Concomitant]
     Dosage: 150 UNK, 2/D
  4. NOVALGIN [Concomitant]
  5. DOXEPIN HCL [Concomitant]
     Dosage: 75 UNK, DAILY (1/D)
  6. ZYPREXA [Concomitant]
     Dosage: 10 MG, DAILY (1/D)
  7. DECORTIN [Concomitant]
     Dosage: 10 MG, DAILY (1/D)
  8. CALCILAC [Concomitant]
     Dosage: 2 D/F, DAILY (1/D)
  9. THEOPHYLLINE [Concomitant]
     Dosage: 200 UNK, DAILY (1/D)
  10. THEOPHYLLINE [Concomitant]
     Dosage: 375 UNK, DAILY (1/D)
  11. TRAMADOL HCL [Concomitant]
     Dosage: 10 MG, UNK
  12. MELPERONE [Concomitant]
     Dosage: 5 ML, UNK

REACTIONS (1)
  - EPILEPSY [None]
